FAERS Safety Report 5394763-9 (Version None)
Quarter: 2007Q3

REPORT INFORMATION
  Report Type: 
  Country: None (occurrence: None)
  Receive Date: 20070723
  Receipt Date: 20070712
  Transmission Date: 20080115
  Serious: Yes (Death)
  Sender: FDA-Public Use
  Company Number: US-PFIZER INC-2007052543

PATIENT
  Sex: Male

DRUGS (1)
  1. CELEBREX [Suspect]
     Route: 048
     Dates: start: 20040310, end: 20040904

REACTIONS (2)
  - ARTHRITIS [None]
  - DEATH [None]
